FAERS Safety Report 7524947-2 (Version None)
Quarter: 2011Q2

REPORT INFORMATION
  Report Type: 
  Country: None (occurrence: None)
  Receive Date: 20110606
  Receipt Date: 20110524
  Transmission Date: 20111010
  Serious: Yes (Hospitalization, Other)
  Sender: FDA-Public Use
  Company Number: CA-ELI_LILLY_AND_COMPANY-CA201105006750

PATIENT
  Sex: Female
  Weight: 79.5 kg

DRUGS (6)
  1. EFFEXOR [Concomitant]
  2. PAROXETINE [Concomitant]
  3. CELEXA [Concomitant]
  4. ZYPREXA [Suspect]
     Dosage: 2.5 MG, EACH EVENING
  5. SEROQUEL [Concomitant]
  6. FLUOXETINE HCL [Concomitant]

REACTIONS (11)
  - HEMIPARESIS [None]
  - HIP FRACTURE [None]
  - PANCREATITIS CHRONIC [None]
  - RENAL CYST [None]
  - CEREBELLAR ATROPHY [None]
  - LOBAR PNEUMONIA [None]
  - PANCREATITIS [None]
  - BLOOD TEST ABNORMAL [None]
  - URINARY TRACT INFECTION [None]
  - WEIGHT INCREASED [None]
  - GLAUCOMA [None]
